FAERS Safety Report 9375991 (Version 1)
Quarter: 2013Q2

REPORT INFORMATION
  Report Type: Spontaneous
  Country: US (occurrence: US)
  Receive Date: 20130629
  Receipt Date: 20130629
  Transmission Date: 20140414
  Serious: No
  Sender: FDA-Public Use
  Company Number: US-B.I. PHARMACEUTICALS,INC./RIDGEFIELD-2013-BI-18338BP

PATIENT
  Age: 40 Year
  Sex: Female
  Weight: 113 kg

DRUGS (6)
  1. COMBIVENT [Suspect]
     Indication: CHRONIC OBSTRUCTIVE PULMONARY DISEASE
     Dosage: STRENGTH: 20 MCG / 100 MCG; DAILY DOSE: 140MCG / 700 MCG
     Route: 055
     Dates: start: 20130613
  2. REGLAN [Concomitant]
     Indication: DYSPEPSIA
     Dosage: 10 MG
     Route: 055
  3. VICODIN [Concomitant]
     Indication: OSTEOARTHRITIS
     Dosage: STRENGTH: 7.5 MG / 750 MG;
     Route: 048
  4. VALIUM [Concomitant]
     Indication: ANXIETY
     Dosage: 0.5 MG
     Route: 048
  5. SYNTHROID [Concomitant]
     Indication: THYROID DISORDER
     Dosage: 125 MCG
     Route: 048
  6. COMBIVENT INHALATION AEROSOL [Concomitant]
     Indication: CHRONIC OBSTRUCTIVE PULMONARY DISEASE
     Dosage: STRENGTH: 18 MCG / 103 MCG; DAILY DOSE: 144 MCG / 824 MCG
     Route: 055
     Dates: start: 2009, end: 20130606

REACTIONS (2)
  - Dyspnoea [Not Recovered/Not Resolved]
  - Overdose [Not Recovered/Not Resolved]
